FAERS Safety Report 7399096-7 (Version None)
Quarter: 2011Q2

REPORT INFORMATION
  Report Type: 
  Country: None (occurrence: None)
  Receive Date: 20110407
  Receipt Date: 20110224
  Transmission Date: 20111010
  Serious: Yes (Other)
  Sender: FDA-Public Use
  Company Number: US-BAYER-2011-009052

PATIENT
  Sex: Male

DRUGS (8)
  1. PLAVIX [Concomitant]
     Dosage: 75 MG, QD
     Route: 048
  2. SYNTHROID [Concomitant]
     Dosage: 0.15 MG, QD
     Route: 048
  3. TRASYLOL [Suspect]
     Indication: PRODUCT USED FOR UNKNOWN INDICATION
     Route: 042
  4. CARAFATE [Concomitant]
     Route: 048
  5. PREVACID [Concomitant]
     Route: 048
  6. ACETYLSALICYLIC ACID SRT [Concomitant]
     Dosage: 81 MG, QD
     Route: 048
  7. PROTONIX [Concomitant]
     Dosage: 40 MG, QD
     Route: 048
  8. METOPROLOL [Concomitant]
     Dosage: 25 MG, QD
     Route: 048

REACTIONS (13)
  - FEAR [None]
  - MULTI-ORGAN FAILURE [None]
  - NERVOUSNESS [None]
  - RENAL FAILURE [None]
  - ANXIETY [None]
  - FEAR OF DEATH [None]
  - ANHEDONIA [None]
  - RENAL INJURY [None]
  - EMOTIONAL DISTRESS [None]
  - UNEVALUABLE EVENT [None]
  - DEPRESSION [None]
  - PAIN [None]
  - INJURY [None]
